FAERS Safety Report 7985533-3 (Version None)
Quarter: 2011Q4

REPORT INFORMATION
  Report Type: 
  Country: None (occurrence: None)
  Receive Date: 20111216
  Receipt Date: 20111209
  Transmission Date: 20120403
  Serious: Yes (Hospitalization, Other)
  Sender: FDA-Public Use
  Company Number: BR-ABBOTT-11P-020-0870990-00

PATIENT
  Sex: Female
  Weight: 75 kg

DRUGS (13)
  1. OMEPRAZOLE [Concomitant]
     Indication: PROPHYLAXIS
  2. ZETRON [Concomitant]
     Indication: DEPRESSION
     Route: 048
  3. SERENATA [Concomitant]
     Indication: DEPRESSION
     Route: 048
  4. DOMPERIDONE [Concomitant]
     Indication: GASTRIC DISORDER
     Dates: start: 20101201
  5. HUMIRA [Suspect]
     Indication: RHEUMATOID ARTHRITIS
     Dates: start: 20110601
  6. OMEPRAZOLE [Concomitant]
     Indication: GASTRIC DISORDER
  7. METFORMIN HCL [Concomitant]
     Indication: DIABETES MELLITUS
     Route: 048
  8. UNKNOWN ANESTHESIA [Suspect]
     Indication: PRODUCT USED FOR UNKNOWN INDICATION
  9. HYZAAR [Concomitant]
     Indication: HYPERTENSION
     Dosage: 50/12.5MG QD
     Dates: start: 20080101
  10. LOSARTAN POTASSIUM [Concomitant]
     Indication: HYPERTENSION
     Route: 048
     Dates: start: 20080101
  11. HUMIRA [Suspect]
  12. SYNTHROID [Concomitant]
     Indication: THYROID DISORDER
     Route: 048
  13. SIMVASTATIN [Concomitant]
     Indication: BLOOD CHOLESTEROL
     Route: 048

REACTIONS (16)
  - COUGH [None]
  - ARTHRALGIA [None]
  - GASTRIC DISORDER [None]
  - ORAL DISORDER [None]
  - NAUSEA [None]
  - SUTURE RELATED COMPLICATION [None]
  - VOMITING [None]
  - KNEE ARTHROPLASTY [None]
  - PAROTID GLAND INFLAMMATION [None]
  - ARTHRITIS INFECTIVE [None]
  - WOUND DEHISCENCE [None]
  - ANAEMIA [None]
  - DIZZINESS [None]
  - POSTOPERATIVE WOUND INFECTION [None]
  - DRUG HYPERSENSITIVITY [None]
  - THIRST [None]
